FAERS Safety Report 15149541 (Version 2)
Quarter: 2018Q3

REPORT INFORMATION
  Report Type: Not Available
  Country: US (occurrence: US)
  Receive Date: 20180716
  Receipt Date: 20180829
  Transmission Date: 20181010
  Serious: No
  Sender: FDA-Public Use
  Company Number: US-NEUROCRINE BIOSCIENCES INC.-2018NBI02084

PATIENT
  Age: 73 Year
  Sex: Female

DRUGS (4)
  1. INGREZZA [Suspect]
     Active Substance: VALBENAZINE
     Indication: MYOCLONUS
     Route: 048
     Dates: start: 20180522, end: 20180706
  2. TEMAZEPAM. [Concomitant]
     Active Substance: TEMAZEPAM
     Indication: ANXIETY
     Dosage: AT BEDTIME
  3. PRISTIQ EXTENDED?RELEASE [Concomitant]
     Active Substance: DESVENLAFAXINE SUCCINATE
     Indication: DEPRESSION
  4. GABAPENTINE [Concomitant]
     Active Substance: GABAPENTIN
     Indication: ANXIETY

REACTIONS (2)
  - Off label use [Unknown]
  - Depression [Recovering/Resolving]

NARRATIVE: CASE EVENT DATE: 201806
